FAERS Safety Report 12750943 (Version 1)
Quarter: 2016Q3

REPORT INFORMATION
  Report Type: Spontaneous
  Country: US (occurrence: US)
  Receive Date: 20160915
  Receipt Date: 20160915
  Transmission Date: 20161109
  Serious: Yes (Other)
  Sender: FDA-Public Use
  Company Number: US-BAYER-2016-174607

PATIENT
  Age: 52 Year
  Sex: Female
  Weight: 54.42 kg

DRUGS (3)
  1. MILK OF MAGNESIA [Suspect]
     Active Substance: MAGNESIUM HYDROXIDE
     Indication: CONSTIPATION
     Dosage: TABLESPOON, ONCE BEFORE BED
     Route: 048
     Dates: end: 20160905
  2. MILK OF MAGNESIA [Suspect]
     Active Substance: MAGNESIUM HYDROXIDE
     Indication: CONSTIPATION
     Dosage: 1 TABLESPOON, ONCE AT BEDTIME
     Route: 048
     Dates: end: 20160905
  3. PHILLIPS^ CHEWABLE TABLETS MINT [Suspect]
     Active Substance: MAGNESIUM HYDROXIDE
     Indication: CONSTIPATION
     Dosage: 5 DF, AT BEDTIME
     Route: 048
     Dates: end: 20160905

REACTIONS (3)
  - Diarrhoea [Recovered/Resolved]
  - Product use issue [None]
  - Drug dependence [None]
